FAERS Safety Report 8478608-6 (Version None)
Quarter: 2012Q2

REPORT INFORMATION
  Report Type: 
  Country: None (occurrence: None)
  Receive Date: 20120629
  Receipt Date: 20120619
  Transmission Date: 20120825
  Serious: Yes (Hospitalization)
  Sender: FDA-Public Use
  Company Number: DE-FRI-1000036715

PATIENT
  Sex: Female

DRUGS (5)
  1. AT 10 [Concomitant]
  2. ANTI-ASTHMATICS [Concomitant]
  3. FRUBIASE [Concomitant]
  4. MEMANTINE HCL [Suspect]
     Indication: DEMENTIA ALZHEIMER'S TYPE
     Dates: start: 20111101
  5. ANTIHYPERTENSIVES [Concomitant]

REACTIONS (4)
  - CONFUSIONAL STATE [None]
  - HALLUCINATION [None]
  - HYPERCALCAEMIA [None]
  - BLOOD CREATININE INCREASED [None]
